FAERS Safety Report 8831738 (Version 3)
Quarter: 2019Q3

REPORT INFORMATION
  Report Type: Spontaneous
  Country: US (occurrence: US)
  Receive Date: 20121009
  Receipt Date: 20190717
  Transmission Date: 20191005
  Serious: Yes (Other)
  Sender: FDA-Public Use
  Company Number: US-PFIZER INC-2012250301

PATIENT
  Age: 58 Year
  Sex: Male
  Weight: 56.69 kg

DRUGS (1)
  1. CELEBREX [Suspect]
     Active Substance: CELECOXIB
     Indication: PAIN
     Dosage: 200 MG, 2X/DAY AS NEEDED (TAKE ONE CAPSULE TWICE DAILY IF NEEDED FOR PAIN)

REACTIONS (2)
  - Autoimmune disorder [Unknown]
  - Loss of personal independence in daily activities [Unknown]
